FAERS Safety Report 24618182 (Version 1)
Quarter: 2024Q4

REPORT INFORMATION
  Report Type: Spontaneous
  Country: US (occurrence: US)
  Receive Date: 20241114
  Receipt Date: 20241114
  Transmission Date: 20250115
  Serious: Yes (Hospitalization)
  Sender: AMGEN
  Company Number: US-AMGEN-USASP2024222086

PATIENT
  Age: 66 Year
  Sex: Female

DRUGS (5)
  1. PREDNISONE [Suspect]
     Active Substance: PREDNISONE
     Indication: Angioedema
     Dosage: UNK, TAPER
     Route: 065
  2. PREDNISONE [Suspect]
     Active Substance: PREDNISONE
     Dosage: UNK, TAPER
     Route: 065
  3. CETIRIZINE [Concomitant]
     Active Substance: CETIRIZINE HYDROCHLORIDE
     Indication: Angioedema
     Dosage: 20 MILLIGRAM, BID
  4. MONTELUKAST [Concomitant]
     Active Substance: MONTELUKAST
     Indication: Angioedema
     Dosage: UNK
  5. OMALIZUMAB [Concomitant]
     Active Substance: OMALIZUMAB
     Indication: Angioedema
     Dosage: UNK

REACTIONS (3)
  - Swelling [Unknown]
  - Dysphagia [Unknown]
  - Sensation of foreign body [Unknown]
